FAERS Safety Report 9237987 (Version 1)
Quarter: 2013Q1

REPORT INFORMATION
  Report Type: Spontaneous
  Country: US (occurrence: None)
  Receive Date: 20121106
  Receipt Date: 20121106
  Transmission Date: 20140127
  Serious: Yes (Other)
  Sender: FDA-Public Use
  Company Number: 1000037492

PATIENT
  Age: 60 Year
  Sex: Female

DRUGS (17)
  1. DALIRESP [Suspect]
     Indication: CHRONIC OBSTRUCTIVE PULMONARY DISEASE
     Dosage: (500 MCG, 1 IN 1 D)
     Route: 048
     Dates: start: 20120605, end: 201206
  2. ZITHROMAX (AZITHROMYCIN) (250 MILLIGRAM, TABLETS) (AZITHROMYCIN) [Concomitant]
  3. PREDNISONE [Concomitant]
  4. CEFTIN (CEFUROXIME AXETIL) [Concomitant]
  5. ATIVAN (LORAZEPAM) (0.5 MILLIGRAM, TABLETS) [Concomitant]
  6. THEOPHYLLINE (THEOPHYLLINE) (300 MILLIGRAM TABLETS) [Concomitant]
  7. COUMADIN (WARFARIN (5 MILLIGRAM, TABLETS) [Concomitant]
  8. CARDIZEM CD (DILTIAZEM HYDROCHLORIDE) (240 MILLIGRAM CAPSULES) (DILTIAZEM HYDROCHLORIDE) [Concomitant]
  9. RAMIPRIL (RAMIPRIL) (5 MILLIGRAM, TABLETS) (RAMIPRIL) [Concomitant]
  10. GABAPENTIN (GABAPENTIN) (600 MILLIGRAM, TABLETS) (GABAPENTIN) [Concomitant]
  11. FUROSEMIDE [Concomitant]
  12. LOVASTATIN (LOVASTATIN) [Concomitant]
  13. NOVOLIN (HUMAN MIXTARD) [Concomitant]
  14. PLAVIX (CLOPIDOGREL BISULFATE) [Concomitant]
  15. ALBUTEROL (ALBUTEROL) [Concomitant]
  16. SYMBICORT (BUDESONIDE W/FORMOTEROL FUMARATE) [Concomitant]
  17. ASPIRIN (ACETYLSALICYLIC ACID) (81 MILLIGRAM, TABLETS (ACETYLSALICYLIC ACID) [Concomitant]

REACTIONS (2)
  - Suicidal ideation [None]
  - Anxiety [None]
